FAERS Safety Report 15376576 (Version 5)
Quarter: 2025Q2

REPORT INFORMATION
  Report Type: Report from Study
  Country: US (occurrence: US)
  Receive Date: 20180912
  Receipt Date: 20250401
  Transmission Date: 20250716
  Serious: Yes (Other)
  Sender: TAKEDA
  Company Number: US-TAKEDA-2018TUS026625

PATIENT
  Age: 38 Year
  Sex: Male
  Weight: 100 kg

DRUGS (3)
  1. VEDOLIZUMAB [Suspect]
     Active Substance: VEDOLIZUMAB
     Indication: Crohn^s disease
  2. VEDOLIZUMAB [Suspect]
     Active Substance: VEDOLIZUMAB
     Indication: Crohn^s disease
  3. VEDOLIZUMAB [Suspect]
     Active Substance: VEDOLIZUMAB

REACTIONS (9)
  - Haematochezia [Recovered/Resolved]
  - Rectal haemorrhage [Recovered/Resolved]
  - Mucous stools [Recovered/Resolved]
  - Urine analysis abnormal [Unknown]
  - Therapeutic reaction time decreased [Unknown]
  - Incorrect drug administration rate [Unknown]
  - Feeling abnormal [Unknown]
  - Body height decreased [Unknown]
  - Weight increased [Unknown]

NARRATIVE: CASE EVENT DATE: 20180304
